FAERS Safety Report 11717842 (Version 1)
Quarter: 2015Q4

REPORT INFORMATION
  Report Type: Spontaneous
  Country: IT (occurrence: None)
  Receive Date: 20151106
  Receipt Date: 20151106
  Transmission Date: 20160304
  Serious: No
  Sender: FDA-Public Use
  Company Number: 1511ITA003234

PATIENT
  Age: 2 Year
  Sex: Female

DRUGS (2)
  1. CEFTIBUTEN (CEFTIBUTEN) CAPSULE [Suspect]
     Active Substance: CEFTIBUTEN
     Indication: OROPHARYNGEAL PAIN
     Route: 048
  2. CEFTIBUTEN (CEFTIBUTEN) CAPSULE [Suspect]
     Active Substance: CEFTIBUTEN
     Indication: PHARYNGOTONSILLITIS
     Route: 048

REACTIONS (1)
  - Erythema multiforme [None]

NARRATIVE: CASE EVENT DATE: 2009
